FAERS Safety Report 9820229 (Version 1)
Quarter: 2014Q1

REPORT INFORMATION
  Report Type: Spontaneous
  Country: US (occurrence: None)
  Receive Date: 20140113
  Receipt Date: 20140113
  Transmission Date: 20141002
  Serious: Yes (Life-Threatening, Hospitalization)
  Sender: FDA-Public Use
  Company Number: None

PATIENT
  Age: 35 Year
  Sex: Female
  Weight: 61.69 kg

DRUGS (1)
  1. NUVA RING [Suspect]
     Indication: CONTRACEPTION
     Dosage: 1 RING 3 WKS ON/1 OFF
     Route: 067
     Dates: start: 20130810, end: 20131214

REACTIONS (2)
  - Pulmonary embolism [None]
  - Cardiomegaly [None]
